FAERS Safety Report 9109813 (Version 2)
Quarter: 2013Q1

REPORT INFORMATION
  Report Type: Spontaneous
  Country: JP (occurrence: JP)
  Receive Date: 20130222
  Receipt Date: 20130313
  Transmission Date: 20140127
  Serious: Yes (Hospitalization, Other)
  Sender: FDA-Public Use
  Company Number: JP-PFIZER INC-2013065903

PATIENT
  Age: 64 Year
  Sex: Male
  Weight: 60 kg

DRUGS (9)
  1. LYRICA [Suspect]
     Indication: NEUROPATHY PERIPHERAL
     Dosage: 300 MG, 1X/DAY
     Route: 048
     Dates: start: 2012
  2. LYRICA [Suspect]
     Dosage: 75 MG, 2X/DAY
     Route: 048
     Dates: start: 20130216, end: 20130218
  3. NOVORAPID [Concomitant]
     Indication: DIABETES MELLITUS
     Dosage: 8 E, ONCE DAILY
  4. AVAPRO [Concomitant]
     Indication: HYPERTENSION
     Dosage: 200 MG, 1X/DAY
  5. RENIVACE [Concomitant]
     Indication: HYPERTENSION
     Dosage: 1 MG, 1X/DAY
  6. TOWARAT [Concomitant]
     Indication: HYPERTENSION
     Dosage: 40 MG, 1X/DAY
  7. FERROMIA [Concomitant]
     Indication: ANAEMIA
     Dosage: 100 MG, 1X/DAY
  8. CONIEL [Concomitant]
     Indication: HYPERTENSION
     Dosage: 4 MG, 2X/DAY
  9. CARDENALIN [Concomitant]
     Indication: HYPERTENSION
     Dosage: 2 MG, 1X/DAY

REACTIONS (2)
  - Convulsion [Recovered/Resolved]
  - Drug ineffective [Unknown]
